FAERS Safety Report 4714230-2 (Version None)
Quarter: 2005Q3

REPORT INFORMATION
  Report Type: 
  Country: None (occurrence: None)
  Receive Date: 20050713
  Receipt Date: 20050713
  Transmission Date: 20060218
  Serious: Yes (Disabling)
  Sender: FDA-Public Use
  Company Number: None

PATIENT
  Age: 46 Year
  Sex: Female
  Weight: 54.4316 kg

DRUGS (2)
  1. PEGASYS [Suspect]
     Indication: HEPATITIS C VIRUS
     Dosage: INJECTION WEEKLY SUBCUTANEOUS
     Route: 058
     Dates: start: 20030505, end: 20040806
  2. COPEGYSUS ROCHE [Suspect]
     Indication: HEPATITIS C VIRUS
     Dosage: 2 + 3 PILLS AM + PM ORAL
     Route: 048
     Dates: start: 20030906, end: 20040806

REACTIONS (4)
  - ABDOMINAL PAIN UPPER [None]
  - DEPRESSION [None]
  - GASTRIC DISORDER [None]
  - NAUSEA [None]
